FAERS Safety Report 24094864 (Version 1)
Quarter: 2024Q3

REPORT INFORMATION
  Report Type: Report from Study
  Country: FR (occurrence: None)
  Receive Date: 20240716
  Receipt Date: 20240716
  Transmission Date: 20241017
  Serious: Yes (Other)
  Sender: ASTRAZENECA
  Company Number: 2019SE74966

PATIENT
  Age: 21373 Day
  Sex: Female
  Weight: 86 kg

DRUGS (1)
  1. LYNPARZA [Suspect]
     Active Substance: OLAPARIB
     Indication: Ovarian cancer stage III
     Route: 048
     Dates: start: 20190411

REACTIONS (8)
  - Neuropathy peripheral [Unknown]
  - Eastern Cooperative Oncology Group performance status worsened [Unknown]
  - Creatinine renal clearance abnormal [Recovered/Resolved]
  - Nausea [Unknown]
  - Dizziness [Unknown]
  - Muscle spasms [Unknown]
  - Musculoskeletal pain [Unknown]
  - Aphthous ulcer [Unknown]

NARRATIVE: CASE EVENT DATE: 20190509
